FAERS Safety Report 7496274-3 (Version None)
Quarter: 2011Q2

REPORT INFORMATION
  Report Type: 
  Country: None (occurrence: None)
  Receive Date: 20110523
  Receipt Date: 20110516
  Transmission Date: 20111010
  Serious: Yes (Death, Hospitalization, Other)
  Sender: FDA-Public Use
  Company Number: US-AMGEN-USASP2011024981

PATIENT
  Age: 58 Year
  Sex: Male

DRUGS (2)
  1. NPLATE [Suspect]
     Indication: THROMBOCYTOPENIA
     Dosage: UNK
     Dates: start: 20101013
  2. PLATELETS [Concomitant]

REACTIONS (5)
  - MULTIPLE FRACTURES [None]
  - DEATH [None]
  - HEAD INJURY [None]
  - BONE MARROW DISORDER [None]
  - APLASTIC ANAEMIA [None]
